FAERS Safety Report 7803597-4 (Version None)
Quarter: 2011Q4

REPORT INFORMATION
  Report Type: 
  Country: None (occurrence: None)
  Receive Date: 20111009
  Receipt Date: 20110926
  Transmission Date: 20120403
  Serious: Yes (Death, Hospitalization)
  Sender: FDA-Public Use
  Company Number: IN-BRISTOL-MYERS SQUIBB COMPANY-16094716

PATIENT
  Age: 70 Year
  Sex: Female

DRUGS (2)
  1. WARFARIN SODIUM [Suspect]
     Route: 048
  2. HEPARIN SODIUM [Suspect]
     Route: 058

REACTIONS (7)
  - HEPARIN-INDUCED THROMBOCYTOPENIA [None]
  - PULMONARY HYPERTENSION [None]
  - COAGULOPATHY [None]
  - MULTI-ORGAN FAILURE [None]
  - MITRAL VALVE STENOSIS [None]
  - HAEMORRHAGE [None]
  - CARDIAC VALVE REPLACEMENT COMPLICATION [None]
